FAERS Safety Report 7527842-8 (Version None)
Quarter: 2011Q2

REPORT INFORMATION
  Report Type: 
  Country: None (occurrence: None)
  Receive Date: 20110513
  Receipt Date: 20110303
  Transmission Date: 20111010
  Serious: Yes (Hospitalization)
  Sender: FDA-Public Use
  Company Number: 2011PL000032

PATIENT
  Age: 42 Year
  Sex: Female
  Weight: 50 kg

DRUGS (9)
  1. PREDNISONE [Concomitant]
  2. ASACOL [Concomitant]
  3. PRAVASTATIN [Concomitant]
  4. IMURAN [Suspect]
     Indication: COLITIS ULCERATIVE
     Dosage: 75 MG;QD;PO
     Route: 048
     Dates: start: 19980827
  5. ATENOLOL [Concomitant]
  6. EFFEXOR [Concomitant]
  7. DIGOXIN [Concomitant]
  8. PROGRAF [Suspect]
     Indication: HEART TRANSPLANT
     Dosage: 1 MG;QAM;
     Dates: start: 19980827
  9. GABAPENTIN [Concomitant]

REACTIONS (8)
  - DIARRHOEA [None]
  - CYTOMEGALOVIRUS VIRAEMIA [None]
  - VOMITING [None]
  - CHILLS [None]
  - GASTROENTERITIS [None]
  - PYREXIA [None]
  - MOUTH ULCERATION [None]
  - INSOMNIA [None]
